FAERS Safety Report 5047717-6 (Version None)
Quarter: 2006Q3

REPORT INFORMATION
  Report Type: 
  Country: None (occurrence: None)
  Receive Date: 20060710
  Receipt Date: 20060710
  Transmission Date: 20061208
  Serious: Yes (Hospitalization)
  Sender: FDA-Public Use
  Company Number: None

PATIENT
  Age: 50 Year
  Sex: Male

DRUGS (2)
  1. OXALIPLATIN [Suspect]
     Indication: LUNG NEOPLASM MALIGNANT
     Dosage: 85 MG/M2 DAYS 1+15
  2. DOCETAXEL [Suspect]
     Indication: LUNG NEOPLASM MALIGNANT
     Dosage: 30 MG/M2  DAY 1+8

REACTIONS (2)
  - NON-CARDIAC CHEST PAIN [None]
  - PLEURAL EFFUSION [None]
